FAERS Safety Report 7404373-7 (Version None)
Quarter: 2011Q2

REPORT INFORMATION
  Report Type: 
  Country: None (occurrence: None)
  Receive Date: 20110408
  Receipt Date: 20110328
  Transmission Date: 20111010
  Serious: Yes (Other)
  Sender: FDA-Public Use
  Company Number: US-GENENTECH-316113

PATIENT

DRUGS (4)
  1. RITUXIMAB [Suspect]
     Indication: B-CELL LYMPHOMA
     Dosage: FOR 4 WEEKS THEN EVERY 8 WEEK FOR 4 ADDITIONAL DOSES
     Route: 042
  2. EPRATUZUMAB [Suspect]
     Indication: B-CELL LYMPHOMA
     Dosage: FROM WEEK 2
     Route: 065
  3. RITUXIMAB [Suspect]
     Dosage: FOR 4 WEEKS THEN EVERY 8 WEEK FOR 4 ADDITIONAL DOSES FOR A TOTAL OF 8 DOSES OVER 9 MONTHS
     Route: 042
  4. EPRATUZUMAB [Suspect]
     Dosage: FROM WEEK 2
     Route: 065

REACTIONS (10)
  - HYPOXIA [None]
  - PRURITUS [None]
  - SEPSIS [None]
  - LUNG DISORDER [None]
  - MYOCARDIAL INFARCTION [None]
  - CYTOKINE STORM [None]
  - DYSPNOEA [None]
  - THROMBOSIS [None]
  - FATIGUE [None]
  - LYMPH NODE PAIN [None]
